FAERS Safety Report 23384398 (Version 3)
Quarter: 2024Q2

REPORT INFORMATION
  Report Type: Spontaneous
  Country: US (occurrence: US)
  Receive Date: 20240109
  Receipt Date: 20240405
  Transmission Date: 20240717
  Serious: No
  Sender: FDA-Public Use
  Company Number: US-PFIZER INC-PV202400001628

PATIENT
  Age: 79 Year
  Sex: Male
  Weight: 86.5 kg

DRUGS (1)
  1. MEKTOVI [Suspect]
     Active Substance: BINIMETINIB
     Indication: Metastatic malignant melanoma
     Dosage: SIG: 3 TABS (45 MG) ORAL EVERY 12 HR
     Route: 048

REACTIONS (2)
  - Dry mouth [Unknown]
  - Neoplasm progression [Unknown]
